FAERS Safety Report 4293838-5 (Version None)
Quarter: 2004Q1

REPORT INFORMATION
  Report Type: 
  Country: None (occurrence: None)
  Receive Date: 20040212
  Receipt Date: 20040120
  Transmission Date: 20041129
  Serious: Yes (Death, Life-Threatening, Hospitalization)
  Sender: FDA-Public Use
  Company Number: PHBS2004JP01187

PATIENT
  Age: 59 Year
  Sex: Male
  Weight: 45 kg

DRUGS (6)
  1. TEGRETOL [Suspect]
     Indication: DEMENTIA ALZHEIMER'S TYPE
     Dosage: 100 MG, BID
     Route: 048
     Dates: start: 20010703, end: 20010704
  2. TEGRETOL [Suspect]
     Dosage: 300 MG/DAY
     Route: 048
     Dates: start: 20010705, end: 20010813
  3. LODOPIN [Concomitant]
     Indication: AGITATION
     Dosage: 100 MG/DAY
     Route: 048
     Dates: start: 20010704, end: 20010820
  4. TIAPRIDE [Concomitant]
     Indication: AGITATION
     Dosage: 50 MG/DAY
     Route: 048
     Dates: start: 20010705, end: 20010820
  5. LEVOTOMIN [Concomitant]
     Indication: AGITATION
     Dosage: 10 MG/DAY
     Route: 048
     Dates: start: 20010705, end: 20010820
  6. TASMOLIN [Concomitant]
     Dosage: 2 MG/DAY
     Route: 048
     Dates: start: 20010706, end: 20010820

REACTIONS (14)
  - BALANCE DISORDER [None]
  - BLOOD CREATINE PHOSPHOKINASE INCREASED [None]
  - DEATH [None]
  - DRUG ERUPTION [None]
  - DRY SKIN [None]
  - ERYTHEMA [None]
  - NEUROLEPTIC MALIGNANT SYNDROME [None]
  - OEDEMA MUCOSAL [None]
  - OROPHARYNGEAL SWELLING [None]
  - PHARYNGEAL ERYTHEMA [None]
  - PYREXIA [None]
  - RASH GENERALISED [None]
  - STOMATITIS [None]
  - SWELLING [None]
